FAERS Safety Report 8221902-4 (Version None)
Quarter: 2012Q1

REPORT INFORMATION
  Report Type: 
  Country: None (occurrence: None)
  Receive Date: 20120320
  Receipt Date: 20120308
  Transmission Date: 20120608
  Serious: Yes (Life-Threatening, Hospitalization)
  Sender: FDA-Public Use
  Company Number: JP-JNJFOC-20110307503

PATIENT
  Age: 66 Year
  Sex: Female
  Weight: 46 kg

DRUGS (15)
  1. REMICADE [Suspect]
     Route: 042
     Dates: start: 20100630
  2. VITADIN [Concomitant]
     Indication: ANGINA PECTORIS
     Dosage: 2TAB
     Route: 048
  3. PLAVIX [Concomitant]
     Route: 048
  4. LIPITOR [Concomitant]
     Route: 048
  5. REMICADE [Suspect]
     Route: 042
     Dates: start: 20100305
  6. METHOTREXATE [Suspect]
     Indication: RHEUMATOID ARTHRITIS
     Route: 048
  7. LEUCOVORIN CALCIUM [Concomitant]
     Indication: PROPHYLAXIS
     Route: 048
  8. REMICADE [Suspect]
     Route: 042
     Dates: start: 20100825
  9. MUCOSTA [Concomitant]
     Indication: PROPHYLAXIS
     Route: 048
     Dates: start: 20111108, end: 20111114
  10. REMICADE [Suspect]
     Indication: RHEUMATOID ARTHRITIS
     Route: 042
     Dates: start: 20110105
  11. REMICADE [Suspect]
     Route: 042
     Dates: start: 20101020
  12. REMICADE [Suspect]
     Route: 042
     Dates: start: 20100428
  13. OCRELIZUMAB [Concomitant]
     Indication: RHEUMATOID ARTHRITIS
     Route: 065
  14. RIBOFLAVIN TAB [Concomitant]
     Indication: ANGINA PECTORIS
     Route: 048
  15. ASPIRIN [Concomitant]
     Route: 048

REACTIONS (1)
  - HERPES ZOSTER [None]
